FAERS Safety Report 10413783 (Version 2)
Quarter: 2014Q3

REPORT INFORMATION
  Report Type: Other
  Country: DE (occurrence: DE)
  Receive Date: 20140827
  Receipt Date: 20140827
  Transmission Date: 20150326
  Serious: Yes (Death, Life-Threatening, Other)
  Sender: FDA-Public Use
  Company Number: DE-CUBIST PHARMACEUTICALS, INC.-2014CBST001109

PATIENT

DRUGS (4)
  1. CUBICIN [Suspect]
     Active Substance: DAPTOMYCIN
     Indication: ARTHRITIS INFECTIVE
     Dosage: 7 MG/KG, QD
     Route: 042
     Dates: start: 20140516, end: 20140626
  2. CUBICIN [Suspect]
     Active Substance: DAPTOMYCIN
     Indication: DEVICE RELATED INFECTION
     Dosage: 700 MG, QD
     Route: 042
     Dates: start: 20140516, end: 20140626
  3. CUBICIN [Suspect]
     Active Substance: DAPTOMYCIN
     Indication: PROPHYLAXIS
  4. CUBICIN [Suspect]
     Active Substance: DAPTOMYCIN
     Indication: OFF LABEL USE

REACTIONS (9)
  - Deep vein thrombosis [Unknown]
  - Dyspnoea [Unknown]
  - Pneumonia klebsiella [Unknown]
  - Pneumonia escherichia [Unknown]
  - Pulmonary embolism [Unknown]
  - Alveolitis [Fatal]
  - Eosinophilic pneumonia [Fatal]
  - Multi-organ failure [Fatal]
  - Atypical pneumonia [Unknown]

NARRATIVE: CASE EVENT DATE: 20140620
